FAERS Safety Report 23874126 (Version 1)
Quarter: 2024Q2

REPORT INFORMATION
  Report Type: Other
  Country: FR (occurrence: FR)
  Receive Date: 20240520
  Receipt Date: 20240520
  Transmission Date: 20240716
  Serious: Yes (Other)
  Sender: FDA-Public Use
  Company Number: FR-MLMSERVICE-20240319-4893834-1

PATIENT
  Sex: Male

DRUGS (5)
  1. SOMATROPIN [Suspect]
     Active Substance: SOMATROPIN
     Indication: Growth hormone deficiency
  2. SOMATROPIN [Suspect]
     Active Substance: SOMATROPIN
     Dosage: 0.01 MG/KG/DAY
  3. SOMATROPIN [Suspect]
     Active Substance: SOMATROPIN
     Dosage: 0.015 MG/KG/DAY
  4. LEVOTHYROXINE [Concomitant]
     Active Substance: LEVOTHYROXINE\LEVOTHYROXINE SODIUM
     Indication: Central hypothyroidism
  5. CHOLECALCIFEROL [Concomitant]
     Active Substance: CHOLECALCIFEROL
     Indication: Product used for unknown indication

REACTIONS (2)
  - Papilloedema [Recovered/Resolved]
  - Intracranial pressure increased [Unknown]
